FAERS Safety Report 9302550 (Version 1)
Quarter: 2013Q2

REPORT INFORMATION
  Report Type: Spontaneous
  Country: GB (occurrence: None)
  Receive Date: 20130517
  Receipt Date: 20130517
  Transmission Date: 20140414
  Serious: Yes (Other)
  Sender: FDA-Public Use
  Company Number: AUR-APL-2013-03793

PATIENT
  Age: 19 Year
  Sex: Female
  Weight: 50.8 kg

DRUGS (4)
  1. CITALOPRAM [Suspect]
     Indication: GENERALISED ANXIETY DISORDER
     Dosage: (30 MG, 1 IN 1 D)
     Route: 048
     Dates: start: 20130201, end: 20130401
  2. CITALOPRAM [Suspect]
     Indication: DEPRESSION
     Dosage: (30 MG, 1 IN 1 D)
     Route: 048
     Dates: start: 20130201, end: 20130401
  3. BUSCOPAN (HYOSCINE BUTYLBROMIDE) [Concomitant]
  4. LOESTRIN (ANOVLAR) [Concomitant]

REACTIONS (4)
  - Migraine [None]
  - Headache [None]
  - Menstruation irregular [None]
  - Menorrhagia [None]
